FAERS Safety Report 6147989-0 (Version None)
Quarter: 2009Q2

REPORT INFORMATION
  Report Type: 
  Country: None (occurrence: None)
  Receive Date: 20090403
  Receipt Date: 20090319
  Transmission Date: 20091009
  Serious: Yes (Other)
  Sender: FDA-Public Use
  Company Number: 108542

PATIENT
  Age: 63 Year
  Sex: Female

DRUGS (4)
  1. DAIVOBET [Suspect]
     Indication: PSORIASIS
     Dosage: (2 TO 3 TIMES PER WEEK) TOPICAL
     Route: 061
     Dates: start: 20090101, end: 20090301
  2. LOPRESSOR [Concomitant]
  3. SYNTHROID [Concomitant]
  4. ROCALTROL [Concomitant]

REACTIONS (4)
  - CONDITION AGGRAVATED [None]
  - PSORIASIS [None]
  - STRESS [None]
  - SUICIDAL IDEATION [None]
